FAERS Safety Report 6266207-6 (Version None)
Quarter: 2009Q3

REPORT INFORMATION
  Report Type: 
  Country: None (occurrence: None)
  Receive Date: 20090713
  Receipt Date: 20090707
  Transmission Date: 20100115
  Serious: Yes (Hospitalization)
  Sender: FDA-Public Use
  Company Number: FR-AVENTIS-200912517FR

PATIENT
  Age: 25 Year
  Sex: Female

DRUGS (10)
  1. LOVENOX [Suspect]
     Indication: THROMBOSIS PROPHYLAXIS
     Route: 058
     Dates: start: 20090312
  2. FORTUM                             /00559702/ [Suspect]
     Route: 042
     Dates: start: 20090310
  3. RIFAMPICIN [Suspect]
     Route: 042
     Dates: start: 20090311, end: 20090313
  4. FOSFOMYCIN [Suspect]
     Route: 042
     Dates: start: 20090311, end: 20090313
  5. TRIFLUCAN [Concomitant]
     Indication: DRUG USE FOR UNKNOWN INDICATION
  6. MIDAZOLAM HCL [Concomitant]
     Indication: DRUG USE FOR UNKNOWN INDICATION
     Route: 042
  7. ACETAMINOPHEN [Concomitant]
     Indication: DRUG USE FOR UNKNOWN INDICATION
     Route: 042
  8. URBANYL [Concomitant]
     Indication: DRUG USE FOR UNKNOWN INDICATION
     Route: 048
  9. KEPPRA [Concomitant]
     Indication: DRUG USE FOR UNKNOWN INDICATION
  10. LASILIX                            /00032601/ [Concomitant]
     Indication: DRUG USE FOR UNKNOWN INDICATION

REACTIONS (2)
  - CHOLESTASIS [None]
  - JAUNDICE [None]
